FAERS Safety Report 20967595 (Version 1)
Quarter: 2022Q2

REPORT INFORMATION
  Report Type: Report from Study
  Country: JP (occurrence: JP)
  Receive Date: 20220616
  Receipt Date: 20220616
  Transmission Date: 20220721
  Serious: Yes (Other)
  Sender: FDA-Public Use
  Company Number: JP-shionogi-202205706_MUL_P_1

PATIENT

DRUGS (1)
  1. MULPLETA [Suspect]
     Active Substance: LUSUTROMBOPAG
     Indication: Thrombocytopenia
     Dosage: UNK
     Route: 048

REACTIONS (1)
  - Myelodysplastic syndrome [Unknown]
